FAERS Safety Report 5518062-7 (Version None)
Quarter: 2007Q4

REPORT INFORMATION
  Report Type: 
  Country: None (occurrence: None)
  Receive Date: 20071115
  Receipt Date: 20071102
  Transmission Date: 20080405
  Serious: Yes (Hospitalization)
  Sender: FDA-Public Use
  Company Number: US-JNJFOC-20071004527

PATIENT
  Sex: Female
  Weight: 48.08 kg

DRUGS (3)
  1. ORTHO EVRA [Suspect]
     Indication: DRUG USE FOR UNKNOWN INDICATION
     Route: 062
  2. AZITHROMYCIN [Concomitant]
     Indication: NASOPHARYNGITIS
  3. SUDAFED 12 HOUR [Concomitant]
     Indication: NASOPHARYNGITIS

REACTIONS (4)
  - ABORTION MISSED [None]
  - DRUG EXPOSURE DURING PREGNANCY [None]
  - PREGNANCY WITH CONTRACEPTIVE PATCH [None]
  - PULMONARY EMBOLISM [None]
